FAERS Safety Report 21164965 (Version 1)
Quarter: 2022Q3

REPORT INFORMATION
  Report Type: Spontaneous
  Country: US (occurrence: US)
  Receive Date: 20220803
  Receipt Date: 20220803
  Transmission Date: 20221027
  Serious: No
  Sender: FDA-Public Use
  Company Number: US-CADILA HEALTHCARE LIMITED-US-ZYDUS-073941

PATIENT

DRUGS (4)
  1. ENOXAPARIN SODIUM [Suspect]
     Active Substance: ENOXAPARIN SODIUM
     Indication: In vitro fertilisation
     Dosage: 30 MILLIGRAM, QD
     Route: 058
     Dates: start: 20211230, end: 20220106
  2. ENOXAPARIN SODIUM [Suspect]
     Active Substance: ENOXAPARIN SODIUM
     Indication: Off label use
  3. METFORMIN [Concomitant]
     Active Substance: METFORMIN HYDROCHLORIDE
     Indication: Product use in unapproved indication
     Dosage: UNK
     Route: 048
  4. PREDNISONE [Concomitant]
     Active Substance: PREDNISONE
     Indication: Product used for unknown indication
     Dosage: UNK
     Route: 065
     Dates: end: 202201

REACTIONS (4)
  - Incorrect dose administered [Recovered/Resolved]
  - Product use in unapproved indication [Recovered/Resolved]
  - Burning sensation [Recovered/Resolved]
  - Product substitution issue [Recovered/Resolved]

NARRATIVE: CASE EVENT DATE: 20211230
